FAERS Safety Report 21437817 (Version 1)
Quarter: 2022Q4

REPORT INFORMATION
  Report Type: Report from Study
  Country: CA (occurrence: CA)
  Receive Date: 20221011
  Receipt Date: 20221011
  Transmission Date: 20230113
  Serious: Yes (Other)
  Sender: FDA-Public Use
  Company Number: CA-ABBVIE-22K-028-4489248-00

PATIENT
  Age: 42 Year
  Sex: Male

DRUGS (1)
  1. HUMIRA [Suspect]
     Active Substance: ADALIMUMAB
     Indication: Crohn^s disease
     Route: 058
     Dates: start: 20200807

REACTIONS (8)
  - Shock [Recovered/Resolved]
  - Condition aggravated [Not Recovered/Not Resolved]
  - Emotional distress [Recovered/Resolved]
  - Pain [Unknown]
  - Abdominal pain upper [Not Recovered/Not Resolved]
  - Injection site pain [Unknown]
  - Anal fistula [Unknown]
  - Anal fissure [Unknown]

NARRATIVE: CASE EVENT DATE: 20220601
